FAERS Safety Report 4784180-4 (Version None)
Quarter: 2005Q3

REPORT INFORMATION
  Report Type: 
  Country: None (occurrence: None)
  Receive Date: 20050930
  Receipt Date: 20050829
  Transmission Date: 20060218
  Serious: Yes (Other)
  Sender: FDA-Public Use
  Company Number: US-GLAXOSMITHKLINE-A0572194A

PATIENT
  Age: 66 Year
  Sex: Female

DRUGS (10)
  1. FLOVENT [Suspect]
     Indication: ASTHMA
     Dosage: 1PUFF SINGLE DOSE
     Route: 055
     Dates: start: 20050828, end: 20050829
  2. ALBUTEROL [Concomitant]
  3. MEDROL [Concomitant]
  4. OXYCONTIN [Concomitant]
  5. BACLOFEN [Concomitant]
  6. DARVOCET [Concomitant]
  7. LABETALOL [Concomitant]
  8. BENADRYL [Concomitant]
  9. SINGULAIR [Concomitant]
  10. ZYRTEC [Concomitant]

REACTIONS (2)
  - ASTHMA [None]
  - CHEST DISCOMFORT [None]
